FAERS Safety Report 7164258-0 (Version None)
Quarter: 2010Q4

REPORT INFORMATION
  Report Type: 
  Country: None (occurrence: None)
  Receive Date: 20101215
  Receipt Date: 20101208
  Transmission Date: 20110411
  Serious: Yes (Life-Threatening, Hospitalization)
  Sender: FDA-Public Use
  Company Number: BR-BRISTOL-MYERS SQUIBB COMPANY-15430846

PATIENT
  Age: 53 Year
  Sex: Male

DRUGS (19)
  1. PACLITAXEL [Suspect]
     Indication: NON-SMALL CELL LUNG CANCER
     Dosage: INF ON DAY 1 OF EACH 21 DAY CYCLE 19-AUG10 TO 20SEP10
     Route: 042
     Dates: start: 20100819, end: 20100920
  2. CARBOPLATIN [Suspect]
     Indication: NON-SMALL CELL LUNG CANCER
     Dosage: 6 DF=6AUC INF ON DAY 1 OF EACH 21 DAY CYCLE:19AUG-19AUG10,20SEP-20SEP10
     Route: 042
     Dates: start: 20100819, end: 20100920
  3. DIMENHYDRINATE [Concomitant]
     Indication: NAUSEA
     Dates: start: 20100823
  4. LOPERAMIDE [Concomitant]
     Indication: DIARRHOEA
     Dosage: DROPS:22AUG10-24AUG10(2D) 4 TABS(1 TAB,4 IN 1 D) FROM 21SEP10-27SEP10(6D).
     Dates: start: 20100822
  5. SODIUM CHLORIDE [Concomitant]
     Indication: HYPOTENSION
     Dates: start: 20100826, end: 20100826
  6. RANITIDINE [Concomitant]
     Indication: PROPHYLAXIS
     Dates: start: 20100818
  7. ONDANSETRON [Concomitant]
     Indication: CHEMOTHERAPY
     Dates: start: 20100819, end: 20100819
  8. AMITRIPTYLINE [Concomitant]
     Indication: INSOMNIA
     Dosage: 25MG:17AUG10-14SEP10(28D) 50MG:1 IN 1 D,13OCT10-ONG
     Dates: start: 20100817
  9. UREA [Concomitant]
     Indication: PAIN IN EXTREMITY
     Dosage: CREAM
     Dates: start: 20101018
  10. METAMIZOLE SODIUM [Concomitant]
     Indication: PAIN IN EXTREMITY
     Dates: start: 20101013
  11. VOMEX A [Concomitant]
     Indication: VOMITING
     Dates: start: 20100921, end: 20100927
  12. METHADONE [Concomitant]
     Indication: PAIN IN EXTREMITY
     Dates: start: 20100817, end: 20100901
  13. MINERAL OIL [Concomitant]
     Indication: CONSTIPATION
     Dates: start: 20101013
  14. PARACETAMOL [Concomitant]
     Indication: PAIN IN EXTREMITY
     Dates: start: 20100817, end: 20100901
  15. MAGNESIUM SULFATE [Concomitant]
     Indication: PALMAR-PLANTAR ERYTHRODYSAESTHESIA SYNDROME
     Dates: start: 20101018
  16. TRAMADOL HCL [Concomitant]
     Indication: PAIN IN EXTREMITY
     Dates: start: 20100826, end: 20100826
  17. PHENOLPHTHALEIN [Concomitant]
     Indication: PAIN IN EXTREMITY
     Dosage: 1 DF=2 TAB(1 TAB,1IN 1 D) 16AUG-13OCT10(58D),2/2HRS(1 TAB) 21SEP-13OCT10(22D).
     Dates: start: 20100816
  18. RED BLOOD CELLS [Concomitant]
     Indication: ANAEMIA
     Dosage: 1DF=2 UNIT 14OCT2010 ;08-16SEP2010 8DAYS
     Dates: start: 20101014
  19. MORPHINE SULFATE [Concomitant]
     Indication: PAIN IN EXTREMITY
     Dates: start: 20101013

REACTIONS (4)
  - DEPRESSED LEVEL OF CONSCIOUSNESS [None]
  - FATIGUE [None]
  - OEDEMA PERIPHERAL [None]
  - PALMAR-PLANTAR ERYTHRODYSAESTHESIA SYNDROME [None]
